FAERS Safety Report 5348657-5 (Version None)
Quarter: 2007Q2

REPORT INFORMATION
  Report Type: 
  Country: None (occurrence: None)
  Receive Date: 20070606
  Receipt Date: 20070525
  Transmission Date: 20071010
  Serious: Yes (Other)
  Sender: FDA-Public Use
  Company Number: US-PFIZER INC-2007044571

PATIENT
  Sex: Female
  Weight: 86.4 kg

DRUGS (7)
  1. CHANTIX [Suspect]
     Indication: EX-SMOKER
     Route: 048
  2. ACTOS [Concomitant]
     Indication: DIABETES MELLITUS
  3. METFORMIN HCL [Concomitant]
     Indication: DIABETES MELLITUS
  4. LEVOTHYROXINE SODIUM [Concomitant]
  5. ENALAPRIL MALEATE [Concomitant]
  6. ATENOLOL AND CHLORTHALIDONE [Concomitant]
  7. VYTORIN [Concomitant]

REACTIONS (1)
  - BLOOD GLUCOSE INCREASED [None]
